FAERS Safety Report 4407706-9 (Version None)
Quarter: 2004Q3

REPORT INFORMATION
  Report Type: 
  Country: None (occurrence: None)
  Receive Date: 20040726
  Receipt Date: 20040622
  Transmission Date: 20050211
  Serious: Yes (Hospitalization, Other)
  Sender: FDA-Public Use
  Company Number: US-MERCK-0406USA02131

PATIENT
  Age: 77 Year
  Sex: Male
  Weight: 88 kg

DRUGS (8)
  1. ISOSORBIDE MONONITRATE [Concomitant]
     Route: 065
  2. LISINOPRIL [Concomitant]
     Route: 065
  3. ACTOS [Concomitant]
     Route: 048
  4. POTASSIUM (UNSPECIFIED) [Concomitant]
     Route: 065
  5. ACIPHEX [Concomitant]
     Route: 065
  6. VIOXX [Suspect]
     Indication: OSTEOARTHRITIS
     Route: 048
     Dates: start: 20030224, end: 20030303
  7. VIOXX [Suspect]
     Route: 048
     Dates: start: 20030311, end: 20030425
  8. TERAZOSIN HYDROCHLORIDE [Concomitant]
     Route: 065

REACTIONS (2)
  - CARDIAC FAILURE CONGESTIVE [None]
  - CARDIOMYOPATHY [None]
